FAERS Safety Report 8603918-9 (Version None)
Quarter: 2012Q3

REPORT INFORMATION
  Report Type: 
  Country: None (occurrence: None)
  Receive Date: 20120820
  Receipt Date: 20120807
  Transmission Date: 20120928
  Serious: No
  Sender: FDA-Public Use
  Company Number: AU-ACTELION-A-CH2012-68898

PATIENT
  Sex: Female

DRUGS (1)
  1. TRACLEER [Suspect]
     Indication: MATERNAL EXPOSURE DURING PREGNANCY
     Route: 064

REACTIONS (1)
  - NORMAL NEWBORN [None]
